FAERS Safety Report 6187170-2 (Version None)
Quarter: 2009Q2

REPORT INFORMATION
  Report Type: 
  Country: None (occurrence: None)
  Receive Date: 20090512
  Receipt Date: 20090414
  Transmission Date: 20091009
  Serious: Yes (Other)
  Sender: FDA-Public Use
  Company Number: DE-PFIZER INC-2007027335

PATIENT
  Sex: Female
  Weight: 56 kg

DRUGS (1)
  1. CHAMPIX [Suspect]
     Dosage: 1 TO 2 TABLETS
     Route: 048
     Dates: start: 20070310, end: 20070329

REACTIONS (4)
  - DIARRHOEA [None]
  - NAUSEA [None]
  - RECTAL TENESMUS [None]
  - WEIGHT DECREASED [None]
